FAERS Safety Report 9211175 (Version 1)
Quarter: 2013Q2

REPORT INFORMATION
  Report Type: Other
  Country: GB (occurrence: GB)
  Receive Date: 20130404
  Receipt Date: 20130404
  Transmission Date: 20140414
  Serious: Yes (Other)
  Sender: FDA-Public Use
  Company Number: GB-ACTAVIS-2013-05950

PATIENT
  Age: 26 Year
  Sex: Male
  Weight: 70 kg

DRUGS (1)
  1. FINASTERIDE [Suspect]
     Indication: ANDROGENETIC ALOPECIA
     Dosage: 1 MG, DAILY
     Route: 048
     Dates: start: 20121207, end: 20121227

REACTIONS (9)
  - Libido decreased [Unknown]
  - Erectile dysfunction [Unknown]
  - Depression [Unknown]
  - Feeling abnormal [Unknown]
  - Muscle atrophy [Unknown]
  - Apathy [Unknown]
  - Blunted affect [Unknown]
  - Testicular atrophy [Unknown]
  - Vision blurred [Unknown]
